FAERS Safety Report 5858062-0 (Version None)
Quarter: 2008Q3

REPORT INFORMATION
  Report Type: 
  Country: None (occurrence: None)
  Receive Date: 20080826
  Receipt Date: 20080818
  Transmission Date: 20090109
  Serious: Yes (Other)
  Sender: FDA-Public Use
  Company Number: JP-MERCK-0805USA05704

PATIENT
  Age: 82 Year
  Sex: Female

DRUGS (8)
  1. FOSAMAX [Suspect]
     Indication: OSTEOPOROSIS
     Route: 048
     Dates: start: 20080426, end: 20080501
  2. MAGNESIUM OXIDE [Concomitant]
     Route: 048
  3. URSO 250 [Concomitant]
     Route: 048
  4. PRAVASTATIN [Concomitant]
     Route: 048
  5. MARZULENE [Concomitant]
     Route: 048
  6. TRYPTANOL [Concomitant]
     Route: 048
  7. BENET [Concomitant]
     Indication: OSTEOPOROSIS
     Route: 065
     Dates: start: 20070501
  8. BENET [Concomitant]
     Indication: COMPRESSION FRACTURE
     Route: 065
     Dates: start: 20070501

REACTIONS (5)
  - ARTHRALGIA [None]
  - GINGIVAL PAIN [None]
  - HEADACHE [None]
  - OTITIS EXTERNA [None]
  - VOCAL CORD PARALYSIS [None]
